FAERS Safety Report 18326435 (Version 2)
Quarter: 2021Q2

REPORT INFORMATION
  Report Type: Spontaneous
  Country: US (occurrence: US)
  Receive Date: 20200929
  Receipt Date: 20210429
  Transmission Date: 20210717
  Serious: No
  Sender: FDA-Public Use
  Company Number: US-PFIZER INC-2020368717

PATIENT
  Age: 52 Year
  Sex: Female

DRUGS (1)
  1. ESTRING [Suspect]
     Active Substance: ESTRADIOL
     Dosage: UNK

REACTIONS (6)
  - Vulvovaginal discomfort [Unknown]
  - Cystitis [Unknown]
  - Device issue [Unknown]
  - Blood urine present [Unknown]
  - Abdominal discomfort [Unknown]
  - Incontinence [Unknown]
